FAERS Safety Report 10011372 (Version 1)
Quarter: 2014Q1

REPORT INFORMATION
  Report Type: Spontaneous
  Country: DK (occurrence: None)
  Receive Date: 20140312
  Receipt Date: 20140312
  Transmission Date: 20141002
  Serious: Yes (Death)
  Sender: FDA-Public Use
  Company Number: UTC-045641

PATIENT
  Sex: Female
  Weight: 77 kg

DRUGS (1)
  1. REMODULIN [Suspect]
     Route: 058

REACTIONS (1)
  - Death [None]
